FAERS Safety Report 17136455 (Version 1)
Quarter: 2019Q4

REPORT INFORMATION
  Report Type: Spontaneous
  Country: US (occurrence: US)
  Receive Date: 20191210
  Receipt Date: 20191210
  Transmission Date: 20200122
  Serious: No
  Sender: FDA-Public Use
  Company Number: US-SA-2019SA337184

PATIENT
  Age: 49 Year
  Sex: Female

DRUGS (1)
  1. DUPIXENT [Suspect]
     Active Substance: DUPILUMAB
     Indication: ASTHMA
     Dosage: 300 MG, QOW
     Route: 058
     Dates: start: 20191104

REACTIONS (6)
  - Eye pain [Unknown]
  - Injection site mass [Unknown]
  - Injection site erythema [Unknown]
  - Injection site pain [Unknown]
  - Eye irritation [Unknown]
  - Vision blurred [Unknown]

NARRATIVE: CASE EVENT DATE: 20191105
